FAERS Safety Report 8068095-4 (Version None)
Quarter: 2012Q1

REPORT INFORMATION
  Report Type: 
  Country: None (occurrence: None)
  Receive Date: 20120124
  Receipt Date: 20110922
  Transmission Date: 20120608
  Serious: No
  Sender: FDA-Public Use
  Company Number: US-AMGEN-USASP2011049106

PATIENT
  Age: 78 Year
  Sex: Female

DRUGS (7)
  1. OXYCONTIN [Concomitant]
  2. CORTISONE ACETATE [Concomitant]
     Dates: end: 20110101
  3. CIPRO [Concomitant]
     Dosage: UNK
     Dates: end: 20110101
  4. ERYTHROMYCIN [Concomitant]
     Dates: end: 20110101
  5. PROLIA [Suspect]
     Indication: OSTEOPOROSIS POSTMENOPAUSAL
     Dates: start: 20110804, end: 20110101
  6. ANTIBIOTICS [Concomitant]
     Dates: end: 20110101
  7. SYNTHROID [Concomitant]

REACTIONS (3)
  - ARTHRALGIA [None]
  - URINARY TRACT INFECTION [None]
  - NERVE COMPRESSION [None]
